FAERS Safety Report 25877052 (Version 2)
Quarter: 2025Q4

REPORT INFORMATION
  Report Type: Spontaneous
  Country: US (occurrence: US)
  Receive Date: 20251003
  Receipt Date: 20251223
  Transmission Date: 20260118
  Serious: No
  Sender: EISAI
  Company Number: US-Eisai-EC-2025-196537

PATIENT
  Age: 69 Year
  Sex: Female
  Weight: 71.2 kg

DRUGS (1)
  1. LEQEMBI [Suspect]
     Active Substance: LECANEMAB-IRMB
     Indication: Dementia Alzheimer^s type
     Dosage: DOSE UNKNOWN
     Route: 042
     Dates: start: 20250312, end: 20250820

REACTIONS (3)
  - Amyloid related imaging abnormality-microhaemorrhages and haemosiderin deposits [Unknown]
  - Amyloid related imaging abnormality-oedema/effusion [Recovering/Resolving]
  - Superficial siderosis of central nervous system [Not Recovered/Not Resolved]

NARRATIVE: CASE EVENT DATE: 20250827
